FAERS Safety Report 5452629-X (Version None)
Quarter: 2007Q3

REPORT INFORMATION
  Report Type: 
  Country: None (occurrence: None)
  Receive Date: 20070914
  Receipt Date: 20070912
  Transmission Date: 20080115
  Serious: Yes (Other)
  Sender: FDA-Public Use
  Company Number: DE-BRISTOL-MYERS SQUIBB COMPANY-13905294

PATIENT

DRUGS (3)
  1. IFOSFAMIDE [Suspect]
     Indication: SARCOMA UTERUS
     Dosage: 1.2 G/SQUARE METER ON DAYS 1 TO 5 AND 29 TO 33 (AFTER START OF RADIOCHEMOTHERAPY).
  2. ADRIAMYCIN PFS [Suspect]
     Indication: SARCOMA UTERUS
     Dosage: 40 0R 50 MG/SQUARE METER ON DAYS 2 AND 30 AFTER START OF RADIOCHEMOTHERAPY.
  3. RADIOTHERAPY [Suspect]
     Indication: SARCOMA UTERUS

REACTIONS (6)
  - DIARRHOEA [None]
  - FEBRILE NEUTROPENIA [None]
  - HAEMATOTOXICITY [None]
  - MALIGNANT NEOPLASM PROGRESSION [None]
  - METASTASIS [None]
  - NEOPLASM RECURRENCE [None]
